FAERS Safety Report 7243746-2 (Version None)
Quarter: 2011Q1

REPORT INFORMATION
  Report Type: 
  Country: None (occurrence: None)
  Receive Date: 20110125
  Receipt Date: 20110121
  Transmission Date: 20110831
  Serious: Yes (Other)
  Sender: FDA-Public Use
  Company Number: US-PFIZER INC-2009279788

PATIENT
  Sex: Male

DRUGS (2)
  1. SUTENT [Suspect]
     Indication: RENAL CELL CARCINOMA
     Dosage: 50 MG, 1X/DAY, FOR 28 DAYS EVERY 42 DAYS
     Route: 048
     Dates: start: 20090501
  2. INDOCIN [Suspect]
     Dosage: UNK
     Dates: end: 20090806

REACTIONS (3)
  - DYSPNOEA [None]
  - BLOOD CREATININE INCREASED [None]
  - PARAESTHESIA [None]
